FAERS Safety Report 20981791 (Version 1)
Quarter: 2022Q2

REPORT INFORMATION
  Report Type: Spontaneous
  Country: CA (occurrence: None)
  Receive Date: 20220620
  Receipt Date: 20220620
  Transmission Date: 20220721
  Serious: Yes (Death)
  Sender: FDA-Public Use
  Company Number: CA-ROCHE-3115826

PATIENT
  Age: 40 Year
  Sex: Male

DRUGS (3)
  1. ACTEMRA [Suspect]
     Active Substance: TOCILIZUMAB
     Indication: Product used for unknown indication
     Route: 058
  2. DEXAMETHASONE [Concomitant]
     Active Substance: DEXAMETHASONE
     Dosage: LIQUID INTRA-ARTICULAR
     Route: 014
  3. ALLOPURINOL [Concomitant]
     Active Substance: ALLOPURINOL

REACTIONS (5)
  - Infection [Fatal]
  - Enterococcal infection [Fatal]
  - Urinary tract infection [Fatal]
  - COVID-19 [Fatal]
  - Device related infection [Fatal]
